FAERS Safety Report 7808050-X (Version None)
Quarter: 2011Q4

REPORT INFORMATION
  Report Type: 
  Country: None (occurrence: None)
  Receive Date: 20111011
  Receipt Date: 20111004
  Transmission Date: 20120403
  Serious: Yes (Other)
  Sender: FDA-Public Use
  Company Number: US-BAYER-200828222NA

PATIENT
  Age: 67 Year
  Sex: Male
  Weight: 88.889 kg

DRUGS (64)
  1. MAGNEVIST [Suspect]
     Dosage: UNK, ONCE
     Dates: start: 20010323, end: 20010323
  2. MAGNEVIST [Suspect]
     Dosage: UNK, ONCE
     Dates: start: 20050210, end: 20050210
  3. MAGNEVIST [Suspect]
     Dosage: UNK, ONCE
     Dates: start: 20060113, end: 20060113
  4. FLOMAX [Concomitant]
  5. ACETAMINOPHEN AND HYDROCODONE BITARTRATE [Concomitant]
  6. CYTOXAN [Concomitant]
  7. EPOETIN ALFA [Concomitant]
  8. NAPROXEN [Concomitant]
  9. IBUPROFEN [Concomitant]
  10. ROFECOXIB [Concomitant]
  11. AMANTADINE HCL [Concomitant]
  12. MAGNEVIST [Suspect]
     Dosage: UNK UNK, ONCE
     Dates: start: 20040610, end: 20040610
  13. MAGNEVIST [Suspect]
     Dosage: UNK, ONCE
     Dates: start: 20041227, end: 20041227
  14. MULTIHANCE [Suspect]
     Indication: NUCLEAR MAGNETIC RESONANCE IMAGING
  15. CLONAZEPAM [Concomitant]
  16. AVONEX [Concomitant]
  17. COUMADIN [Concomitant]
  18. MAGNEVIST [Suspect]
     Indication: NUCLEAR MAGNETIC RESONANCE IMAGING
     Dosage: UNK UNK, ONCE
     Dates: start: 20001211, end: 20001211
  19. MAGNEVIST [Suspect]
     Indication: NUCLEAR MAGNETIC RESONANCE IMAGING BRAIN
     Dosage: UNK, ONCE
     Dates: start: 20030501, end: 20030501
  20. MAGNEVIST [Suspect]
     Dosage: UNK, ONCE
     Dates: start: 20040611, end: 20040611
  21. PROHANCE [Suspect]
     Indication: NUCLEAR MAGNETIC RESONANCE IMAGING
  22. GADOLINIUM IN UNSPECIFIED DRUG [Suspect]
     Indication: NUCLEAR MAGNETIC RESONANCE IMAGING BRAIN
     Dosage: UNK UNK, ONCE
     Dates: start: 19980331, end: 19980331
  23. FUROSEMIDE [Concomitant]
  24. CLOTRIMAZOLE [Concomitant]
  25. LISINOPRIL [Concomitant]
  26. ANTIINFLAMMATORY/ANTIRHEUMATIC PRODUCTS [Concomitant]
  27. MAGNEVIST [Suspect]
     Dosage: UNK, ONCE
     Dates: start: 20010522, end: 20010522
  28. MAGNEVIST [Suspect]
     Indication: ANGIOGRAM
     Dosage: UNK, ONCE
     Dates: start: 20030821, end: 20030821
  29. MAGNEVIST [Suspect]
     Dosage: UNK, ONCE
     Dates: start: 20010523, end: 20010523
  30. MAGNEVIST [Suspect]
     Dosage: UNK, ONCE
     Dates: start: 20030502, end: 20030502
  31. OPTIMARK [Suspect]
     Indication: NUCLEAR MAGNETIC RESONANCE IMAGING
  32. GADOLINIUM IN UNSPECIFIED DRUG [Suspect]
     Dosage: UNK, ONCE
     Dates: start: 20041210, end: 20041210
  33. URICAL [Concomitant]
  34. ASPIRIN [Concomitant]
  35. DOXAZOSIN MESYLATE [Concomitant]
  36. MAGNEVIST [Suspect]
     Dosage: UNK
     Dates: start: 20060407, end: 20060407
  37. GADOLINIUM IN UNSPECIFIED DRUG [Suspect]
     Indication: NUCLEAR MAGNETIC RESONANCE IMAGING
     Dosage: UNK, ONCE
     Dates: start: 19980527, end: 19980527
  38. GADOLINIUM IN UNSPECIFIED DRUG [Suspect]
     Dosage: UNK, ONCE
     Dates: start: 20040511, end: 20040511
  39. GADOLINIUM IN UNSPECIFIED DRUG [Suspect]
     Dosage: UNK, ONCE
     Dates: start: 20040701, end: 20040701
  40. GADOLINIUM IN UNSPECIFIED DRUG [Suspect]
     Dosage: UNK, ONCE
     Dates: start: 20051216, end: 20051216
  41. ALLOPURINOL [Concomitant]
  42. CYCLOSPORINE [Concomitant]
  43. VIOXX [Concomitant]
  44. MAGNEVIST [Suspect]
     Dosage: UNK UNK, ONCE
     Dates: start: 20050822, end: 20050822
  45. OMNISCAN [Suspect]
     Indication: NUCLEAR MAGNETIC RESONANCE IMAGING
     Dosage: UNK UNK, ONCE
     Dates: start: 20070202, end: 20070202
  46. OMNISCAN [Suspect]
     Indication: NUCLEAR MAGNETIC RESONANCE IMAGING BRAIN
     Dosage: UNK
     Dates: start: 20070213, end: 20070213
  47. GABAPENTIN [Concomitant]
  48. TAMSULOSIN HCL [Concomitant]
  49. COPAXONE [Concomitant]
  50. FERROUS SULFATE TAB [Concomitant]
  51. BACLOFEN [Concomitant]
  52. MAGNEVIST [Suspect]
     Dosage: UNK, ONCE
     Dates: start: 20050902, end: 20050902
  53. GADOLINIUM IN UNSPECIFIED DRUG [Suspect]
     Dosage: UNK, ONCE
     Dates: start: 20050729, end: 20050729
  54. GADOLINIUM IN UNSPECIFIED DRUG [Suspect]
     Dosage: UNK, ONCE
     Dates: start: 20060317, end: 20060317
  55. PREGABALIN [Concomitant]
  56. NITROFURANTOIN [Concomitant]
  57. MAGNEVIST [Suspect]
     Dosage: UNK UNK, ONCE
     Dates: start: 20001211, end: 20001211
  58. GADOLINIUM IN UNSPECIFIED DRUG [Suspect]
     Dosage: UNK UNK, ONCE
     Dates: start: 20030422, end: 20030422
  59. GADOLINIUM IN UNSPECIFIED DRUG [Suspect]
     Dosage: UNK, ONCE
     Dates: start: 20060321, end: 20060321
  60. SERTRALINE HYDROCHLORIDE [Concomitant]
  61. ZOLOFT [Concomitant]
  62. ATORVASTATIN [Concomitant]
  63. GLIPIZIDE [Concomitant]
  64. TYLENOL W/ CODEINE NO. 3 [Concomitant]

REACTIONS (29)
  - INJURY [None]
  - ANXIETY [None]
  - MYALGIA [None]
  - MYOPATHY [None]
  - KYPHOSIS [None]
  - GAIT DISTURBANCE [None]
  - NEPHROGENIC SYSTEMIC FIBROSIS [None]
  - ANHEDONIA [None]
  - MUSCLE CONTRACTURE [None]
  - DRY SKIN [None]
  - EMOTIONAL DISTRESS [None]
  - PAIN [None]
  - SCAR [None]
  - MYOSCLEROSIS [None]
  - DYSSTASIA [None]
  - SKIN HYPERTROPHY [None]
  - SKIN SWELLING [None]
  - SKIN TIGHTNESS [None]
  - BONE PAIN [None]
  - MUSCLE TIGHTNESS [None]
  - JOINT CONTRACTURE [None]
  - SKIN BURNING SENSATION [None]
  - PRURITUS [None]
  - MOBILITY DECREASED [None]
  - PAIN OF SKIN [None]
  - DEPRESSION [None]
  - OEDEMA PERIPHERAL [None]
  - MUSCULAR WEAKNESS [None]
  - JOINT RANGE OF MOTION DECREASED [None]
